FAERS Safety Report 5382515-5 (Version None)
Quarter: 2007Q3

REPORT INFORMATION
  Report Type: 
  Country: None (occurrence: None)
  Receive Date: 20070710
  Receipt Date: 20070601
  Transmission Date: 20080115
  Serious: Yes (Other)
  Sender: FDA-Public Use
  Company Number: BR-ASTRAZENECA-2007UW13338

PATIENT
  Age: 34 Year
  Sex: Male
  Weight: 97 kg

DRUGS (1)
  1. ROPIVACAINE [Suspect]
     Route: 053

REACTIONS (4)
  - ANAESTHETIC COMPLICATION [None]
  - APNOEA [None]
  - HYPOTENSION [None]
  - MYDRIASIS [None]
